FAERS Safety Report 18377334 (Version 2)
Quarter: 2020Q4

REPORT INFORMATION
  Report Type: Spontaneous
  Country: US (occurrence: US)
  Receive Date: 20201013
  Receipt Date: 20201019
  Transmission Date: 20210114
  Serious: No
  Sender: FDA-Public Use
  Company Number: US-PFIZER INC-2020385779

PATIENT
  Age: 61 Year
  Sex: Female
  Weight: 116.57 kg

DRUGS (2)
  1. LYRICA [Suspect]
     Active Substance: PREGABALIN
     Indication: DEPRESSION
     Dosage: 100 MG, 2X/DAY
     Route: 048
  2. LYRICA [Suspect]
     Active Substance: PREGABALIN
     Indication: ARTHRITIS
     Dosage: 75 MG

REACTIONS (9)
  - Nervous system disorder [Unknown]
  - Tremor [Unknown]
  - Drug effective for unapproved indication [Unknown]
  - Intentional product use issue [Unknown]
  - Fatigue [Unknown]
  - Somnolence [Unknown]
  - Product use in unapproved indication [Unknown]
  - Eye allergy [Unknown]
  - Off label use [Unknown]
